FAERS Safety Report 7736093-3 (Version None)
Quarter: 2011Q3

REPORT INFORMATION
  Report Type: 
  Country: None (occurrence: None)
  Receive Date: 20110908
  Receipt Date: 20110825
  Transmission Date: 20111222
  Serious: No
  Sender: FDA-Public Use
  Company Number: US-B.I. PHARMACEUTICALS,INC./RIDGEFIELD-2011-BP-18425BP

PATIENT
  Age: 82 Year
  Sex: Female

DRUGS (12)
  1. AVAPRO [Concomitant]
     Indication: HYPERTENSION
  2. AMIODARONE HCL [Concomitant]
  3. CARDIZEM [Concomitant]
     Indication: HYPERTENSION
     Dosage: 240 MG
     Route: 048
  4. SINGULAIR [Concomitant]
     Indication: CHRONIC OBSTRUCTIVE PULMONARY DISEASE
  5. WELCHOL [Concomitant]
     Indication: BLOOD CHOLESTEROL INCREASED
  6. PRADAXA [Suspect]
     Indication: CARDIAC DISORDER
  7. ATROVENT [Concomitant]
     Indication: HYPERSENSITIVITY
  8. LASIX [Concomitant]
     Indication: HYPERTENSION
  9. CARTIA XT [Concomitant]
  10. ADVAIR DISKUS 100/50 [Concomitant]
     Indication: CHRONIC OBSTRUCTIVE PULMONARY DISEASE
     Route: 055
  11. KLOR-CON [Concomitant]
     Indication: SUPPLEMENTATION THERAPY
  12. PRADAXA [Suspect]
     Indication: ATRIAL FIBRILLATION
     Dosage: 300 MG
     Route: 048
     Dates: start: 20110723

REACTIONS (2)
  - DIZZINESS [None]
  - DIZZINESS POSTURAL [None]
